FAERS Safety Report 25617732 (Version 1)
Quarter: 2025Q3

REPORT INFORMATION
  Report Type: Spontaneous
  Country: US (occurrence: US)
  Receive Date: 20250729
  Receipt Date: 20250729
  Transmission Date: 20251021
  Serious: Yes (Hospitalization, Other)
  Sender: AUROBINDO
  Company Number: US-MLMSERVICE-20250711-PI572981-00039-1

PATIENT
  Age: 70 Year
  Sex: Male

DRUGS (2)
  1. ACYCLOVIR [Suspect]
     Active Substance: ACYCLOVIR
     Indication: Disseminated varicella zoster virus infection
     Dosage: 10 MILLIGRAM/KILOGRAM, 3 TIMES A DAY
     Route: 042
  2. ACYCLOVIR [Suspect]
     Active Substance: ACYCLOVIR
     Indication: Varicella encephalitis

REACTIONS (2)
  - Inappropriate antidiuretic hormone secretion [Recovered/Resolved]
  - Condition aggravated [Recovered/Resolved]
